FAERS Safety Report 7273248-9 (Version None)
Quarter: 2011Q1

REPORT INFORMATION
  Report Type: 
  Country: None (occurrence: None)
  Receive Date: 20110203
  Receipt Date: 20110125
  Transmission Date: 20110831
  Serious: Yes (Other)
  Sender: FDA-Public Use
  Company Number: US-ELI_LILLY_AND_COMPANY-US200910007704

PATIENT
  Sex: Male
  Weight: 88.889 kg

DRUGS (43)
  1. ZYPREXA [Suspect]
     Dosage: 15 MG, EACH EVENING
     Route: 048
  2. AMITRIPTYLINE HCL [Concomitant]
     Dosage: 75 MG, EACH EVENING
     Route: 048
  3. SILDENAFIL [Concomitant]
     Dosage: 100 MG, AS NEEDED
     Route: 048
  4. NORTRIPTYLINE [Concomitant]
     Dosage: 10 MG, EACH EVENING
     Route: 048
  5. CYANOCOBALAMIN [Concomitant]
     Dosage: 1000 UG, MONTHLY (1/M)
     Route: 030
  6. ZYPREXA [Suspect]
     Indication: SCHIZOPHRENIA, PARANOID TYPE
     Dosage: 10 MG, EACH EVENING
     Route: 048
  7. ALBUTEROL [Concomitant]
     Dosage: UNK, AS NEEDED
  8. FUROSEMIDE [Concomitant]
     Dosage: 40 MG, DAILY (1/D)
     Route: 048
  9. ASPIRIN [Concomitant]
     Dosage: 81 MG, DAILY (1/D)
  10. CITALOPRAM HYDROBROMIDE [Concomitant]
     Dosage: 60 MG, EACH EVENING
     Route: 048
  11. TERAZOSIN [Concomitant]
     Indication: HYPERTONIC BLADDER
     Dosage: 4 MG, DAILY (1/D)
  12. FINASTERIDE [Concomitant]
     Dosage: 5 MG, DAILY (1/D)
     Route: 048
  13. QUETIAPINE FUMARATE [Concomitant]
     Dosage: 200 MG, EACH EVENING
     Route: 048
  14. INDOMETHACIN [Concomitant]
     Dosage: 25 MG, 3/D
     Route: 048
  15. ZYPREXA [Suspect]
     Dosage: 25 MG, DAILY (1/D)
     Route: 048
  16. RAMIPRIL [Concomitant]
     Indication: BLOOD PRESSURE
     Dosage: 2.5 MG, DAILY (1/D)
     Route: 048
  17. TAMSULOSIN HCL [Concomitant]
     Dosage: 0.8 MG, EACH EVENING
     Route: 048
  18. TRAZODONE HCL [Concomitant]
     Dosage: 50 MG, EACH EVENING
     Route: 048
  19. POTASSIUM CHLORIDE [Concomitant]
     Dosage: 10 MEQ, DAILY (1/D)
     Route: 048
  20. METHOCARBAMOL [Concomitant]
     Indication: MUSCLE SPASMS
     Dosage: 750 MG, 2/D
     Route: 048
  21. RAMIPRIL [Concomitant]
     Dosage: 10 MG, DAILY (1/D)
     Route: 048
  22. ARIPIPRAZOLE [Concomitant]
     Dosage: 30 MG, DAILY (1/D)
     Route: 048
  23. PRAVASTATIN [Concomitant]
     Indication: BLOOD CHOLESTEROL
     Dosage: 60 MG, DAILY (1/D)
     Route: 048
  24. DIVALPROEX [Concomitant]
     Dosage: 1000 MG, EACH EVENING
     Route: 048
  25. NITROGLYCERIN [Concomitant]
     Indication: CHEST PAIN
     Dosage: 400 UG, AS NEEDED
  26. VARDENAFIL HYDROCHLORIDE (LEVITRA) [Concomitant]
     Dosage: 10 MG, AS NEEDED
     Route: 048
  27. OMEPRAZOLE [Concomitant]
     Dosage: 40 MG, 2/D
     Route: 048
  28. METOPROLOL [Concomitant]
     Indication: HEART RATE
     Dosage: 75 MG, 2/D
     Route: 048
  29. ZYPREXA [Suspect]
     Dosage: 20 MG, EACH EVENING
     Route: 048
  30. CLONAZEPAM [Concomitant]
     Dosage: 0.5 MG, 2/D
     Route: 048
  31. ARIPIPRAZOLE [Concomitant]
     Dosage: 10 MG, DAILY (1/D)
     Route: 048
  32. CARBAMAZEPINE [Concomitant]
     Dosage: 200 MG, 2/D
     Route: 048
  33. RABEPRAZOLE SODIUM [Concomitant]
     Dosage: 20 MG, 2/D
     Route: 048
  34. NIACIN [Concomitant]
     Dosage: 500 MG, 2/D
     Route: 048
  35. GABAPENTIN [Concomitant]
     Dosage: 300 MG, 2/D
     Route: 048
  36. ZYPREXA [Suspect]
     Dosage: 30 MG, DAILY (1/D)
     Route: 048
  37. VARDENAFIL HYDROCHLORIDE (LEVITRA) [Concomitant]
     Dosage: 20 MG, AS NEEDED
     Route: 048
  38. PIROXICAM [Concomitant]
     Dosage: 20 MG, 2/D
     Route: 048
  39. SIBUTRAMINE HYDROCHLORIDE MONOHYDRATE [Concomitant]
     Indication: WEIGHT DECREASED
     Dosage: 10 MG, DAILY (1/D)
     Route: 048
  40. GALANTAMINE HYDROBROMIDE [Concomitant]
     Dosage: 40 MG, 2/D
     Route: 048
  41. ENALAPRIL MALEATE [Concomitant]
     Indication: BLOOD PRESSURE
     Dosage: 5 MG, DAILY (1/D)
     Route: 048
  42. QUETIAPINE FUMARATE [Concomitant]
     Dosage: 300 MG, EACH EVENING
     Route: 048
  43. ASPIRIN [Concomitant]
     Dosage: 325 MG, DAILY (1/D)

REACTIONS (18)
  - MUMPS [None]
  - VISION BLURRED [None]
  - FATIGUE [None]
  - HYPERPHAGIA [None]
  - HYPERGLYCAEMIA [None]
  - POLYURIA [None]
  - DIABETES MELLITUS [None]
  - HYPERTENSION [None]
  - MYOCARDIAL ISCHAEMIA [None]
  - POLYDIPSIA [None]
  - BLOOD TRIGLYCERIDES INCREASED [None]
  - GLYCOSURIA [None]
  - HYPOGLYCAEMIA [None]
  - GENERAL PHYSICAL CONDITION ABNORMAL [None]
  - OVERDOSE [None]
  - WEIGHT DECREASED [None]
  - BLOOD CHOLESTEROL ABNORMAL [None]
  - OBESITY [None]
